FAERS Safety Report 8591918-7 (Version None)
Quarter: 2012Q3

REPORT INFORMATION
  Report Type: 
  Country: None (occurrence: None)
  Receive Date: 20120814
  Receipt Date: 20120808
  Transmission Date: 20120928
  Serious: Yes (Other)
  Sender: FDA-Public Use
  Company Number: FR-GENZYME-CAMP-1002369

PATIENT
  Age: 57 Year
  Sex: Male

DRUGS (3)
  1. DEXAMETHASONE [Suspect]
     Indication: PRODUCT USED FOR UNKNOWN INDICATION
     Dosage: 40 MG, QD
     Route: 065
     Dates: start: 20120101
  2. MABCAMPATH [Suspect]
     Indication: CHRONIC LYMPHOCYTIC LEUKAEMIA
     Dosage: 30 MG, QD ON DAY 1-4
     Route: 058
     Dates: start: 20120101
  3. MABCAMPATH [Suspect]
     Dosage: 30 MG, QD, 15-18
     Route: 058

REACTIONS (2)
  - HYPERLIPIDAEMIA [None]
  - DIABETES MELLITUS [None]
